FAERS Safety Report 14082693 (Version 1)
Quarter: 2017Q4

REPORT INFORMATION
  Report Type: Spontaneous
  Country: US (occurrence: None)
  Receive Date: 20171013
  Receipt Date: 20171013
  Transmission Date: 20180321
  Serious: Yes (Disabling)
  Sender: FDA-Public Use
  Company Number: None

PATIENT
  Age: 81 Year
  Sex: Female
  Weight: 83.91 kg

DRUGS (15)
  1. CALCIUM [Concomitant]
     Active Substance: CALCIUM
  2. OLANZIPINE 5MG [Suspect]
     Active Substance: OLANZAPINE
     Indication: SCHIZOPHRENIA
     Dosage: 1 PILL  AT BEDTIME MOUTH?MAR 1994 ?
     Route: 048
     Dates: start: 199403, end: 20160820
  3. OXYBUTININ [Concomitant]
     Active Substance: OXYBUTYNIN
  4. LEVOTHYROXINE. [Concomitant]
     Active Substance: LEVOTHYROXINE
  5. ZYRTEC [Concomitant]
     Active Substance: CETIRIZINE HYDROCHLORIDE
  6. MELATONIN [Concomitant]
     Active Substance: MELATONIN
  7. VIT. D-3 [Concomitant]
  8. LECITHIN [Concomitant]
     Active Substance: LECITHIN
  9. PRAVASTATIN. [Concomitant]
     Active Substance: PRAVASTATIN
  10. B-6 [Concomitant]
  11. VITAMIN B12 [Concomitant]
     Active Substance: CYANOCOBALAMIN
  12. MULTI-VITAMIN [Concomitant]
     Active Substance: .ALPHA.-TOCOPHEROL ACETATE, DL-\ASCORBIC ACID\CYANOCOBALAMIN\FLUORIDE ION\FOLIC ACID\NIACIN\PYRIDOXINE\RIBOFLAVIN\THIAMINE\VITAMIN A\VITAMIN D
  13. BABY ASPIRIN [Concomitant]
     Active Substance: ASPIRIN
  14. VITAMIN C [Concomitant]
     Active Substance: ASCORBIC ACID
  15. LISINOPRIL. [Concomitant]
     Active Substance: LISINOPRIL

REACTIONS (9)
  - Eye pruritus [None]
  - Tooth loss [None]
  - Palpitations [None]
  - Middle insomnia [None]
  - Pruritus [None]
  - Insomnia [None]
  - Eye irritation [None]
  - Vomiting [None]
  - Asthma [None]

NARRATIVE: CASE EVENT DATE: 20160820
